FAERS Safety Report 16635700 (Version 2)
Quarter: 2019Q3

REPORT INFORMATION
  Report Type: Report from Study
  Country: US (occurrence: US)
  Receive Date: 20190726
  Receipt Date: 20190729
  Transmission Date: 20191004
  Serious: Yes (Death, Life-Threatening, Hospitalization)
  Sender: FDA-Public Use
  Company Number: US-ROCHE-2358675

PATIENT
  Age: 63 Year
  Sex: Male
  Weight: 72.8 kg

DRUGS (3)
  1. PEMETREXED. [Suspect]
     Active Substance: PEMETREXED
     Indication: PLEURAL MESOTHELIOMA MALIGNANT
     Dosage: LAST DOSE: 5/JUN/2019
     Route: 042
     Dates: start: 20190325
  2. ATEZOLIZUMAB. [Suspect]
     Active Substance: ATEZOLIZUMAB
     Indication: PLEURAL MESOTHELIOMA MALIGNANT
     Dosage: LAST DOSE: 5/JUN/2019
     Route: 042
     Dates: start: 20190325
  3. CISPLATIN. [Suspect]
     Active Substance: CISPLATIN
     Indication: PLEURAL MESOTHELIOMA MALIGNANT
     Dosage: LAST DOSE: 5/JUN/2019
     Route: 042
     Dates: start: 20190325

REACTIONS (5)
  - Acute kidney injury [Unknown]
  - Sepsis [Fatal]
  - Respiratory failure [Unknown]
  - Pneumonitis [Unknown]
  - Lung infection [Unknown]

NARRATIVE: CASE EVENT DATE: 20190624
